FAERS Safety Report 14972712 (Version 6)
Quarter: 2021Q3

REPORT INFORMATION
  Report Type: Spontaneous
  Country: US (occurrence: US)
  Receive Date: 20180605
  Receipt Date: 20210716
  Transmission Date: 20211014
  Serious: Yes (Other)
  Sender: FDA-Public Use
  Company Number: US-PFIZER INC-2018225568

PATIENT
  Age: 89 Year
  Sex: Female

DRUGS (1)
  1. XALKORI [Suspect]
     Active Substance: CRIZOTINIB
     Indication: LUNG NEOPLASM MALIGNANT
     Dosage: 250 MG, 1X/DAY (1 TAB DAILY)
     Route: 048

REACTIONS (4)
  - Macular degeneration [Unknown]
  - Deafness [Unknown]
  - Blindness [Unknown]
  - Nervousness [Unknown]
